FAERS Safety Report 26158784 (Version 2)
Quarter: 2025Q4

REPORT INFORMATION
  Report Type: Spontaneous
  Country: JP (occurrence: JP)
  Receive Date: 20251215
  Receipt Date: 20251218
  Transmission Date: 20260117
  Serious: Yes (Death, Hospitalization)
  Sender: TAKEDA
  Company Number: JP-TAKEDA-2025TJP012686

PATIENT
  Age: 1 Year
  Sex: Male

DRUGS (1)
  1. VPRIV [Suspect]
     Active Substance: VELAGLUCERASE ALFA
     Indication: Gaucher^s disease
     Dosage: UNK

REACTIONS (2)
  - Gaucher^s disease [Fatal]
  - Oxygen saturation decreased [Not Recovered/Not Resolved]

NARRATIVE: CASE EVENT DATE: 20251210
